FAERS Safety Report 14181418 (Version 4)
Quarter: 2018Q2

REPORT INFORMATION
  Report Type: Report from Study
  Country: US (occurrence: US)
  Receive Date: 20171113
  Receipt Date: 20180523
  Transmission Date: 20180711
  Serious: Yes (Death, Life-Threatening, Hospitalization, Other)
  Sender: FDA-Public Use
  Company Number: PHHO2017US015444

PATIENT
  Age: 60 Year
  Sex: Female
  Weight: 75.8 kg

DRUGS (3)
  1. TRAMETINIB [Suspect]
     Active Substance: TRAMETINIB
     Indication: MALIGNANT MELANOMA
     Dosage: 2 MG, QD
     Route: 048
     Dates: start: 20170923, end: 20171019
  2. GSK2118436 [Suspect]
     Active Substance: DABRAFENIB
     Indication: MALIGNANT MELANOMA
     Dosage: TOTAL DOSE 9150 MG
     Route: 048
     Dates: start: 20170923, end: 20171023
  3. ZOLEDRONIC ACID. [Suspect]
     Active Substance: ZOLEDRONIC ACID
     Indication: METASTASES TO BONE
     Dosage: UNK
     Route: 065
     Dates: start: 20171019

REACTIONS (8)
  - Hypocalcaemia [Recovering/Resolving]
  - Embolism [Recovered/Resolved]
  - Hypophosphataemia [Unknown]
  - Anaemia [Recovered/Resolved]
  - Sepsis [Fatal]
  - Aspartate aminotransferase increased [Recovering/Resolving]
  - Pneumonitis [Unknown]
  - Hypoalbuminaemia [Unknown]

NARRATIVE: CASE EVENT DATE: 20171023
